FAERS Safety Report 6269111-2 (Version None)
Quarter: 2009Q3

REPORT INFORMATION
  Report Type: 
  Country: None (occurrence: None)
  Receive Date: 20090715
  Receipt Date: 20090709
  Transmission Date: 20100115
  Serious: Yes (Hospitalization, Other)
  Sender: FDA-Public Use
  Company Number: US-MERCK-0907USA01331

PATIENT
  Age: 70 Year
  Sex: Female

DRUGS (6)
  1. JANUVIA [Suspect]
     Indication: DIABETES MELLITUS
     Route: 048
     Dates: start: 20050101
  2. NORVASC [Concomitant]
     Route: 065
  3. VASOTEC [Concomitant]
     Route: 048
  4. METFORMIN [Concomitant]
     Route: 065
  5. SIMVASTATIN [Concomitant]
     Route: 048
  6. VITAMINS (UNSPECIFIED) [Concomitant]
     Route: 065

REACTIONS (4)
  - AMNESIA [None]
  - BLINDNESS [None]
  - CEREBROVASCULAR ACCIDENT [None]
  - DEAFNESS [None]
